FAERS Safety Report 7077890-X (Version None)
Quarter: 2010Q4

REPORT INFORMATION
  Report Type: 
  Country: None (occurrence: None)
  Receive Date: 20101101
  Receipt Date: 20101019
  Transmission Date: 20110411
  Serious: Yes (Hospitalization, Other)
  Sender: FDA-Public Use
  Company Number: CH-ELI_LILLY_AND_COMPANY-CH201010005120

PATIENT
  Age: 68 Year
  Sex: Female

DRUGS (5)
  1. ZYPREXA [Suspect]
     Dosage: 7.5 MG, DAILY (1/D)
     Route: 048
  2. ZOLOFT [Concomitant]
     Dosage: 25 MG, DAILY (1/D)
     Route: 048
     Dates: start: 20100209
  3. ORFIRIL [Concomitant]
     Dosage: 750 MG, DAILY (1/D)
     Route: 048
  4. ORFIRIL [Concomitant]
     Dosage: 600 MG, DAILY (1/D)
     Route: 048
  5. ANXIOLIT [Concomitant]
     Dosage: 7.5 MG, 3/D
     Route: 065

REACTIONS (7)
  - AGITATION [None]
  - BRADYCARDIA [None]
  - DEHYDRATION [None]
  - DIET REFUSAL [None]
  - DRUG INTERACTION [None]
  - HYPERNATRAEMIA [None]
  - RENAL FAILURE ACUTE [None]
